FAERS Safety Report 10218281 (Version 1)
Quarter: 2014Q2

REPORT INFORMATION
  Report Type: Spontaneous
  Country: US (occurrence: US)
  Receive Date: 20140605
  Receipt Date: 20140605
  Transmission Date: 20141212
  Serious: No
  Sender: FDA-Public Use
  Company Number: US-B.I. PHARMACEUTICALS,INC./RIDGEFIELD-2014-BI-23270BP

PATIENT
  Age: 66 Year
  Sex: Male
  Weight: 64 kg

DRUGS (12)
  1. TRADJENTA [Suspect]
     Indication: TYPE 2 DIABETES MELLITUS
     Dosage: 5 MG
     Route: 048
     Dates: start: 20140425
  2. PLAVIX [Concomitant]
     Indication: ANTICOAGULANT THERAPY
     Dosage: 75 MG
     Route: 048
  3. METOPROLOL [Concomitant]
     Indication: CARDIAC DISORDER
     Dosage: 25 MG
     Route: 048
  4. METOPROLOL [Concomitant]
     Indication: HYPERTENSION
  5. SODIUM BICARBONATE [Concomitant]
     Indication: POLYCYTHAEMIA VERA
     Dosage: 2400 MG
     Route: 048
  6. SODIUM BICARBONATE [Concomitant]
     Indication: ACIDOSIS
  7. TRICOR [Concomitant]
     Indication: BLOOD TRIGLYCERIDES INCREASED
     Dosage: 145 MG
     Route: 048
  8. VITAMIN D [Concomitant]
     Indication: VITAMIN D DECREASED
     Dosage: 1000 U
     Route: 048
  9. OMEPRAZOLE [Concomitant]
     Indication: GASTROOESOPHAGEAL REFLUX DISEASE
     Dosage: 20 MG
     Route: 048
  10. VITAMIN B COMPLEX [Concomitant]
     Dosage: 1 ANZ
     Route: 048
  11. CINNAMON [Concomitant]
     Indication: HYPERTENSION
     Dosage: 1 ANZ
     Route: 048
  12. CINNAMON [Concomitant]
     Indication: CARDIAC DISORDER

REACTIONS (2)
  - Blood glucose increased [Not Recovered/Not Resolved]
  - Diarrhoea [Not Recovered/Not Resolved]
